FAERS Safety Report 15171245 (Version 2)
Quarter: 2018Q3

REPORT INFORMATION
  Report Type: Spontaneous
  Country: US (occurrence: US)
  Receive Date: 20180720
  Receipt Date: 20180914
  Transmission Date: 20181010
  Serious: No
  Sender: FDA-Public Use
  Company Number: US-GLAXOSMITHKLINE-US2018124932

PATIENT
  Age: 64 Year
  Sex: Female

DRUGS (1)
  1. ADVAIR DISKUS [Suspect]
     Active Substance: FLUTICASONE PROPIONATE\SALMETEROL XINAFOATE
     Indication: PRODUCT USED FOR UNKNOWN INDICATION
     Dosage: 1 PUFF(S), PRN
     Route: 055

REACTIONS (10)
  - Prescribed overdose [Unknown]
  - Dysgeusia [Unknown]
  - Wrong technique in device usage process [Unknown]
  - Dysphonia [Recovering/Resolving]
  - Extra dose administered [Unknown]
  - Intentional underdose [Unknown]
  - Drug ineffective [Not Recovered/Not Resolved]
  - Cough [Not Recovered/Not Resolved]
  - Intentional product misuse [Unknown]
  - Product quality issue [Unknown]

NARRATIVE: CASE EVENT DATE: 20180709
